FAERS Safety Report 8322627-7 (Version None)
Quarter: 2012Q2

REPORT INFORMATION
  Report Type: 
  Country: None (occurrence: None)
  Receive Date: 20120430
  Receipt Date: 20120419
  Transmission Date: 20120825
  Serious: Yes (Other)
  Sender: FDA-Public Use
  Company Number: DE-UCBSA-056075

PATIENT
  Age: 51 Year
  Sex: Male

DRUGS (8)
  1. KEPPRA [Suspect]
     Dosage: DAILY DOSE: 500 MG/D
  2. LAMOTRIGINE [Suspect]
     Dosage: DAILY DOSE: 200 MG/D
  3. LAMOTRIGINE [Suspect]
     Dosage: APPROX. 7000 MG
  4. KEPPRA [Suspect]
     Dosage: DAILY DOSE: 2000MG/D
  5. KEPPRA [Suspect]
     Dosage: UNKNOWN DOSE
  6. LAMOTRIGINE [Suspect]
     Dosage: DAILY DOSE: 100 MG/D
  7. KEPPRA [Suspect]
     Dosage: DAILY DOSE: 1500 MG/D
  8. KEPPRA [Suspect]
     Dosage: DAILY DOSE: 1000 MG/D

REACTIONS (7)
  - AGGRESSION [None]
  - FATIGUE [None]
  - SUICIDE ATTEMPT [None]
  - DEPRESSION [None]
  - LISTLESS [None]
  - INTENTIONAL OVERDOSE [None]
  - AURA [None]
